FAERS Safety Report 6381049-9 (Version None)
Quarter: 2009Q3

REPORT INFORMATION
  Report Type: 
  Country: None (occurrence: None)
  Receive Date: 20090929
  Receipt Date: 20090120
  Transmission Date: 20100115
  Serious: Yes (Other)
  Sender: FDA-Public Use
  Company Number: BR-PFIZER INC-2009213897

PATIENT

DRUGS (1)
  1. FIBRASE [Suspect]
     Indication: WOUND TREATMENT
     Dosage: UNK
     Route: 061

REACTIONS (5)
  - PROCEDURAL SITE REACTION [None]
  - SELF-MEDICATION [None]
  - SURGERY [None]
  - SUTURE RELATED COMPLICATION [None]
  - WOUND DEHISCENCE [None]
